FAERS Safety Report 7772013-3 (Version None)
Quarter: 2011Q3

REPORT INFORMATION
  Report Type: 
  Country: None (occurrence: None)
  Receive Date: 20110922
  Receipt Date: 20101011
  Transmission Date: 20111222
  Serious: No
  Sender: FDA-Public Use
  Company Number: US-ASTRAZENECA-2010SE47896

PATIENT
  Age: 40 Year
  Sex: Female
  Weight: 40.8 kg

DRUGS (1)
  1. SEROQUEL [Suspect]
     Indication: BIPOLAR DISORDER
     Dosage: 1/2 TO 1 TABLET DAILY
     Route: 048
     Dates: end: 20091201

REACTIONS (8)
  - WEIGHT DECREASED [None]
  - IMPAIRED WORK ABILITY [None]
  - DECREASED APPETITE [None]
  - INSOMNIA [None]
  - SOCIAL FEAR [None]
  - DRUG DOSE OMISSION [None]
  - PANIC ATTACK [None]
  - NEGATIVE THOUGHTS [None]
